FAERS Safety Report 4633623-5 (Version None)
Quarter: 2005Q2

REPORT INFORMATION
  Report Type: 
  Country: None (occurrence: None)
  Receive Date: 20050401
  Receipt Date: 20041222
  Transmission Date: 20051028
  Serious: No
  Sender: FDA-Public Use
  Company Number: 2004BI002068

PATIENT
  Age: 66 Year
  Sex: Male
  Weight: 88.905 kg

DRUGS (2)
  1. NATALIZUMAB [Suspect]
     Indication: MULTIPLE SCLEROSIS
     Dosage: IV
     Route: 042
     Dates: start: 20041221
  2. SENOKOT [Concomitant]

REACTIONS (1)
  - DIARRHOEA [None]
